FAERS Safety Report 22377486 (Version 3)
Quarter: 2023Q4

REPORT INFORMATION
  Report Type: Spontaneous
  Country: US (occurrence: US)
  Receive Date: 20230529
  Receipt Date: 20231030
  Transmission Date: 20240109
  Serious: No
  Sender: FDA-Public Use
  Company Number: US-BIOGENIDEC-2012BI065128

PATIENT
  Age: 36 Year
  Sex: Female

DRUGS (12)
  1. TYSABRI [Suspect]
     Active Substance: NATALIZUMAB
     Indication: Multiple sclerosis
     Route: 050
     Dates: start: 20121116
  2. TYSABRI [Suspect]
     Active Substance: NATALIZUMAB
     Route: 050
     Dates: end: 20130225
  3. TYSABRI [Suspect]
     Active Substance: NATALIZUMAB
     Route: 050
  4. ALENDRONATE [Concomitant]
     Active Substance: ALENDRONATE SODIUM
     Route: 050
  5. CALCIUM [Concomitant]
     Active Substance: CALCIUM
     Route: 050
  6. VITAMIN C [Concomitant]
     Active Substance: ASCORBIC ACID
     Route: 050
  7. VITAMIN D [Concomitant]
     Active Substance: VITAMIN D NOS
     Route: 050
  8. CEPHALEXIN [Concomitant]
     Active Substance: CEPHALEXIN
     Route: 050
  9. LINZESS [Concomitant]
     Active Substance: LINACLOTIDE
     Route: 050
  10. COPAXONE [Concomitant]
     Active Substance: GLATIRAMER ACETATE
     Route: 050
  11. BENADRYL [Concomitant]
     Active Substance: DIPHENHYDRAMINE HYDROCHLORIDE
     Route: 050
  12. OCREVUS [Concomitant]
     Active Substance: OCRELIZUMAB
     Route: 050

REACTIONS (6)
  - Adverse reaction [Unknown]
  - Hypersensitivity [Unknown]
  - Pruritus [Recovered/Resolved with Sequelae]
  - Infusion related reaction [Recovered/Resolved]
  - Rash [Recovered/Resolved]
  - Urticaria [Recovered/Resolved]

NARRATIVE: CASE EVENT DATE: 20121214
